FAERS Safety Report 8014282-0 (Version None)
Quarter: 2011Q4

REPORT INFORMATION
  Report Type: 
  Country: None (occurrence: None)
  Receive Date: 20111229
  Receipt Date: 20111222
  Transmission Date: 20120403
  Serious: Yes (Hospitalization)
  Sender: FDA-Public Use
  Company Number: JP-GLAXOSMITHKLINE-B0771574A

PATIENT
  Age: 64 Year
  Sex: Male

DRUGS (3)
  1. VALTREX [Suspect]
     Indication: HERPES ZOSTER
     Dosage: 500MG ALTERNATE DAYS
     Route: 048
     Dates: start: 20111220, end: 20111220
  2. LOXONIN [Concomitant]
     Indication: PAIN
     Route: 048
     Dates: start: 20111221
  3. ARASENA-A [Concomitant]
     Indication: HERPES ZOSTER
     Route: 061
     Dates: start: 20111220

REACTIONS (2)
  - DIARRHOEA [None]
  - DELIRIUM [None]
